FAERS Safety Report 6166666-3 (Version None)
Quarter: 2009Q2

REPORT INFORMATION
  Report Type: 
  Country: None (occurrence: None)
  Receive Date: 20090423
  Receipt Date: 20090423
  Transmission Date: 20091009
  Serious: Yes (Life-Threatening, Other)
  Sender: FDA-Public Use
  Company Number: None

PATIENT
  Age: 42 Year
  Sex: Female
  Weight: 124.7392 kg

DRUGS (2)
  1. CYMBALTA [Suspect]
     Indication: ANXIETY
     Dosage: 60 MG 1 X DAILY PO
     Route: 048
     Dates: start: 20060916, end: 20090421
  2. CYMBALTA [Suspect]
     Indication: DEPRESSION
     Dosage: 60 MG 1 X DAILY PO
     Route: 048
     Dates: start: 20060916, end: 20090421

REACTIONS (2)
  - LOSS OF EMPLOYMENT [None]
  - WITHDRAWAL SYNDROME [None]
